FAERS Safety Report 4807260-3 (Version None)
Quarter: 2005Q4

REPORT INFORMATION
  Report Type: 
  Country: None (occurrence: None)
  Receive Date: 20051020
  Receipt Date: 20051020
  Transmission Date: 20060501
  Serious: No
  Sender: FDA-Public Use
  Company Number: None

PATIENT
  Age: 78 Year
  Sex: Male
  Weight: 109 kg

DRUGS (9)
  1. FERRIC GLUCONATE [Suspect]
     Indication: IRON DEFICIENCY ANAEMIA
     Dosage: 250 MG IV
     Route: 042
     Dates: start: 20050914
  2. MYCOPHENOLATE [Concomitant]
  3. TACROLIMUS [Concomitant]
  4. PREDNISONE TAB [Concomitant]
  5. RANITIDINE [Concomitant]
  6. LORAZEPAM [Concomitant]
  7. METOPROLOL [Concomitant]
  8. FOLIC ACID [Concomitant]
  9. NIFEDIPINE [Concomitant]

REACTIONS (2)
  - OEDEMA PERIPHERAL [None]
  - URTICARIA [None]
